FAERS Safety Report 16890815 (Version 1)
Quarter: 2019Q4

REPORT INFORMATION
  Report Type: Report from Study
  Country: None (occurrence: US)
  Receive Date: 20191007
  Receipt Date: 20191007
  Transmission Date: 20200122
  Serious: Yes (Other)
  Sender: FDA-Public Use
  Company Number: US-ABBVIE-19K-163-2946187-00

PATIENT
  Age: 61 Year
  Sex: Female

DRUGS (1)
  1. CREON [Suspect]
     Active Substance: PANCRELIPASE AMYLASE\PANCRELIPASE LIPASE\PANCRELIPASE PROTEASE
     Indication: PRODUCT USED FOR UNKNOWN INDICATION
     Route: 048

REACTIONS (10)
  - Cholecystectomy [Unknown]
  - Arthroscopy [Unknown]
  - Caesarean section [Unknown]
  - Spinal operation [Unknown]
  - Knee arthroplasty [Unknown]
  - Gastrointestinal disorder [Unknown]
  - Hysteroscopy [Unknown]
  - Oesophageal motility disorder [Unknown]
  - Female sterilisation [Unknown]
  - Rotator cuff repair [Unknown]

NARRATIVE: CASE EVENT DATE: 20180126
